FAERS Safety Report 5746932-3 (Version None)
Quarter: 2008Q2

REPORT INFORMATION
  Report Type: 
  Country: None (occurrence: None)
  Receive Date: 20080520
  Receipt Date: 20080520
  Transmission Date: 20081010
  Serious: Yes (Hospitalization)
  Sender: FDA-Public Use
  Company Number: None

PATIENT
  Age: 70 Year
  Sex: Male
  Weight: 68.0396 kg

DRUGS (1)
  1. DIGITEK  O.125 MG  MYLAN PHARMACEUTICALS [Suspect]
     Indication: CARDIAC FAILURE
     Dosage: O.125 ONCE A DAY
     Dates: start: 20070801, end: 20080512

REACTIONS (6)
  - HEART RATE IRREGULAR [None]
  - INJURY [None]
  - MALAISE [None]
  - MEDICATION ERROR [None]
  - OVERDOSE [None]
  - PHARMACEUTICAL PRODUCT COMPLAINT [None]
